FAERS Safety Report 17198624 (Version 1)
Quarter: 2019Q4

REPORT INFORMATION
  Report Type: Spontaneous
  Country: DE (occurrence: DE)
  Receive Date: 20191225
  Receipt Date: 20191225
  Transmission Date: 20200122
  Serious: Yes (Hospitalization)
  Sender: FDA-Public Use
  Company Number: DE-DEXPHARM-20191204

PATIENT
  Age: 90 Year
  Sex: Male

DRUGS (11)
  1. PEPPERMINT OIL [Concomitant]
     Active Substance: PEPPERMINT OIL
     Dosage: 0.2 ML, IN THE MORNING AND IN THE EVENING
     Route: 048
  2. PANTOPRAZOLE [Concomitant]
     Active Substance: PANTOPRAZOLE
     Dosage: IN THE EVENING
     Route: 048
  3. BETAVERT [Concomitant]
     Active Substance: BETAHISTINE
     Dosage: 6 MG IN THE MORNING, NOON AND EVENING
     Route: 048
  4. DICLOFENAC [Suspect]
     Active Substance: DICLOFENAC
     Dosage: IN THE MORNING
     Route: 048
  5. TILIDINE/NALOXONE [Suspect]
     Active Substance: NALOXONE HYDROCHLORIDE\TILIDINE HYDROCHLORIDE
     Dosage: 4 MG/ 50 MG IN THE MORNING
     Route: 048
  6. SIMETHICONE (DIMETHICONE) [Concomitant]
     Active Substance: DIMETHICONE
     Dosage: 30 IN THE MORNING, 30 IN THE NOON, 30 IN THE EVENING AND 30 IN THE NIGHT
     Route: 048
  7. METAMIZOLE [Suspect]
     Active Substance: METAMIZOLE
     Dosage: 25 IN THE MORNING, 25 IN THE NOON, 25 IN THE EVENING AND 25 IN THE NIGHT
     Route: 048
  8. ASPIRIN. [Suspect]
     Active Substance: ASPIRIN
     Dosage: 100 MG, IN THE MORNING
     Route: 048
  9. TAMSULOSIN [Concomitant]
     Active Substance: TAMSULOSIN
     Dosage: 0.4 MG, ONCE A DAY IN THE EVENING
     Route: 048
  10. METOPROLOL. [Concomitant]
     Active Substance: METOPROLOL
     Dosage: 23.75 MG IN THE MORNING AND IN THE EVENING
     Route: 048
  11. ATORVASTATIN [Concomitant]
     Active Substance: ATORVASTATIN
     Dosage: 40 MG, IN THE EVENING
     Route: 048

REACTIONS (1)
  - Abdominal distension [Unknown]
